FAERS Safety Report 5283479-5 (Version None)
Quarter: 2007Q1

REPORT INFORMATION
  Report Type: 
  Country: None (occurrence: None)
  Receive Date: 20061226
  Receipt Date: 20060926
  Transmission Date: 20070707
  Serious: No
  Sender: FDA-Public Use
  Company Number: 2006PV021965

PATIENT
  Age: 54 Year
  Sex: Female
  Weight: 88.905 kg

DRUGS (5)
  1. SYMLIN [Suspect]
     Indication: DIABETES MELLITUS INSULIN-DEPENDENT
     Dosage: SEE IMAGE
     Route: 058
     Dates: start: 20060918, end: 20060920
  2. SYMLIN [Suspect]
     Indication: DIABETES MELLITUS INSULIN-DEPENDENT
     Dosage: SEE IMAGE
     Route: 058
     Dates: start: 20060921, end: 20060923
  3. SYMLIN [Suspect]
     Indication: DIABETES MELLITUS INSULIN-DEPENDENT
     Dosage: SEE IMAGE
     Route: 058
     Dates: start: 20060924
  4. LANTUS [Concomitant]
  5. HUMALOG [Concomitant]

REACTIONS (4)
  - COUGH [None]
  - COUGH DECREASED [None]
  - GLOSSODYNIA [None]
  - RHINORRHOEA [None]
